FAERS Safety Report 5909164-1 (Version None)
Quarter: 2008Q4

REPORT INFORMATION
  Report Type: 
  Country: None (occurrence: None)
  Receive Date: 20081006
  Receipt Date: 20081002
  Transmission Date: 20090506
  Serious: Yes (Death, Hospitalization)
  Sender: FDA-Public Use
  Company Number: DEWYE332025JAN06

PATIENT
  Age: 51 Year
  Sex: Male

DRUGS (5)
  1. RAPAMUNE [Suspect]
     Indication: PROPHYLAXIS AGAINST TRANSPLANT REJECTION
     Dosage: UNKNOWN
     Route: 048
     Dates: start: 20051127
  2. RAPAMUNE [Suspect]
     Route: 048
     Dates: start: 20060106
  3. GLUCOCORTICOSTEROIDS [Concomitant]
     Indication: PROPHYLAXIS AGAINST TRANSPLANT REJECTION
     Dosage: UNKNOWN
     Route: 048
     Dates: start: 20051127
  4. FRAGMIN [Suspect]
     Indication: DEEP VEIN THROMBOSIS
     Route: 058
     Dates: start: 20060110, end: 20060121
  5. CELLCEPT [Concomitant]
     Indication: PROPHYLAXIS AGAINST TRANSPLANT REJECTION
     Dosage: UNKNOWN
     Route: 048
     Dates: start: 20051127

REACTIONS (7)
  - CARDIOVASCULAR INSUFFICIENCY [None]
  - DEEP VEIN THROMBOSIS [None]
  - HAEMATEMESIS [None]
  - IMMUNOSUPPRESSANT DRUG LEVEL INCREASED [None]
  - LYMPHOCELE [None]
  - PULMONARY EMBOLISM [None]
  - URINARY TRACT INFECTION [None]
